FAERS Safety Report 7866413-0 (Version None)
Quarter: 2011Q4

REPORT INFORMATION
  Report Type: 
  Country: None (occurrence: None)
  Receive Date: 20111028
  Receipt Date: 20110613
  Transmission Date: 20120403
  Serious: No
  Sender: FDA-Public Use
  Company Number: US-GLAXOSMITHKLINE-A0931325A

PATIENT
  Sex: Male

DRUGS (8)
  1. SPIRIVA [Concomitant]
  2. CLOBETASOL [Concomitant]
  3. ADVAIR DISKUS 100/50 [Suspect]
     Indication: CHRONIC OBSTRUCTIVE PULMONARY DISEASE
     Dosage: 1PUFF TWICE PER DAY
     Route: 055
     Dates: start: 20110606, end: 20110610
  4. VERAPAMIL EXTENDED-RELEASE [Concomitant]
  5. ACTONEL [Concomitant]
  6. SIMVASTATIN [Concomitant]
  7. FUROSEMIDE [Concomitant]
  8. TRANDOLAPRIL [Concomitant]

REACTIONS (4)
  - STOMATITIS [None]
  - DIARRHOEA [None]
  - LICHEN PLANUS [None]
  - MUSCLE SPASMS [None]
